FAERS Safety Report 4758965-4 (Version None)
Quarter: 2005Q3

REPORT INFORMATION
  Report Type: 
  Country: None (occurrence: None)
  Receive Date: 20050826
  Receipt Date: 20050813
  Transmission Date: 20060218
  Serious: Yes (Other)
  Sender: FDA-Public Use
  Company Number: 2005115353

PATIENT
  Age: 77 Year
  Sex: Female

DRUGS (7)
  1. UNASYN [Suspect]
     Indication: INTERVERTEBRAL DISCITIS
     Dosage: 2 IN 1 D
     Dates: start: 20050809, end: 20050809
  2. DOPAMINE HYDROCHLORIDE [Suspect]
     Indication: ILL-DEFINED DISORDER
     Dosage: 250 MG, INTRAVENOUS
     Route: 042
     Dates: start: 20050810, end: 20050810
  3. KOLANTYL (ALUMINIUM HYDROXIDE, DICYCLOVERINE HYDROCHLORIDE, MAGNESIUM [Concomitant]
  4. LAC B (LACTOBACILLUS BIFIDUS, LYOPHILIZED) [Concomitant]
  5. ALL OTHER THERAPEUTIC PRODUCTS (ALL OTHER THERAPEUTIC PRODUCTS) [Concomitant]
  6. VEEN D (CALCIUM CHLORIDE DIHYDRATE, GLUCOSE, POTASSIUM CHLORIDE, SODIU [Concomitant]
  7. ACTIT (MAGNESIUM CHLROIDE ANHYDROUS, MALTOSE, POTASSIUM CHLORIDE, POTA [Concomitant]

REACTIONS (1)
  - TACHYCARDIA [None]
